FAERS Safety Report 9071427 (Version 1)
Quarter: 2013Q1

REPORT INFORMATION
  Report Type: Spontaneous
  Country: US (occurrence: US)
  Receive Date: 20130206
  Receipt Date: 20130206
  Transmission Date: 20140127
  Serious: No
  Sender: FDA-Public Use
  Company Number: US-ALLERGAN-1211265US

PATIENT
  Age: 48 Year
  Sex: Female

DRUGS (7)
  1. RESTASIS? [Suspect]
     Indication: DRY EYE
     Dosage: 2 GTT, BID
     Route: 047
     Dates: start: 201206
  2. ADVAIR [Concomitant]
     Indication: ASTHMA
     Dosage: UNK
  3. VENTOLIN [Concomitant]
     Indication: ASTHMA
     Dosage: UNK
  4. ACIPHEX [Concomitant]
     Indication: GASTROOESOPHAGEAL REFLUX DISEASE
     Dosage: UNK
  5. THEOPHYLLINE [Concomitant]
     Indication: ASTHMA
     Dosage: UNK
  6. LIPITOR [Concomitant]
     Indication: BLOOD CHOLESTEROL
     Dosage: UNK
  7. SPIRONOLACTONE [Concomitant]
     Indication: ALOPECIA
     Dosage: UNK

REACTIONS (3)
  - Sinusitis [Unknown]
  - Headache [Recovered/Resolved]
  - Eye pain [Unknown]
